FAERS Safety Report 11692751 (Version 1)
Quarter: 2015Q4

REPORT INFORMATION
  Report Type: Report from Study
  Country: US (occurrence: US)
  Receive Date: 20151103
  Receipt Date: 20151103
  Transmission Date: 20160304
  Serious: Yes (Hospitalization)
  Sender: FDA-Public Use
  Company Number: US-ABBVIE-15K-163-1489963-00

PATIENT
  Sex: Female

DRUGS (1)
  1. HUMIRA [Suspect]
     Active Substance: ADALIMUMAB
     Indication: RHEUMATOID ARTHRITIS
     Route: 058
     Dates: start: 20150129, end: 201506

REACTIONS (7)
  - Pain in extremity [Not Recovered/Not Resolved]
  - Blood pressure abnormal [Unknown]
  - Oedema [Recovering/Resolving]
  - Drug dose omission [Recovered/Resolved]
  - Peripheral swelling [Recovering/Resolving]
  - Induration [Recovering/Resolving]
  - Myocardial infarction [Recovering/Resolving]

NARRATIVE: CASE EVENT DATE: 2015
